FAERS Safety Report 25678630 (Version 1)
Quarter: 2025Q3

REPORT INFORMATION
  Report Type: Spontaneous
  Country: US (occurrence: US)
  Receive Date: 20250814
  Receipt Date: 20250814
  Transmission Date: 20251021
  Serious: No
  Sender: RANBAXY
  Company Number: US-SUN PHARMACEUTICAL INDUSTRIES LTD-2025R1-497454

PATIENT
  Sex: Male

DRUGS (3)
  1. ODOMZO [Suspect]
     Active Substance: SONIDEGIB
     Indication: Basal cell carcinoma
     Route: 048
     Dates: start: 20241223
  2. ODOMZO [Suspect]
     Active Substance: SONIDEGIB
     Dosage: 200 MILLIGRAM, OD
     Route: 048
     Dates: start: 20241230
  3. ODOMZO [Suspect]
     Active Substance: SONIDEGIB
     Dosage: 200 MILLIGRAM, OD
     Route: 048

REACTIONS (6)
  - Muscle spasms [Unknown]
  - Ageusia [Unknown]
  - Asthenia [Unknown]
  - Pruritus [Unknown]
  - Alopecia [Unknown]
  - Furuncle [Unknown]
